FAERS Safety Report 5322597-X (Version None)
Quarter: 2007Q2

REPORT INFORMATION
  Report Type: 
  Country: None (occurrence: None)
  Receive Date: 20070507
  Receipt Date: 20070420
  Transmission Date: 20071010
  Serious: Yes (Death)
  Sender: FDA-Public Use
  Company Number: 068

PATIENT
  Sex: Male
  Weight: 85.7298 kg

DRUGS (5)
  1. FAZACLO ODT [Suspect]
     Indication: SCHIZOPHRENIA
     Dosage: 400 MG PO DAILY
     Dates: start: 20051209, end: 20060707
  2. LIPITOR [Concomitant]
  3. ACCUPRIL [Concomitant]
  4. METFORMIN HCL [Concomitant]
  5. INSULIN [Concomitant]

REACTIONS (3)
  - ASTHENIA [None]
  - INFLUENZA [None]
  - TREATMENT NONCOMPLIANCE [None]
